FAERS Safety Report 8196615-8 (Version None)
Quarter: 2012Q1

REPORT INFORMATION
  Report Type: 
  Country: None (occurrence: None)
  Receive Date: 20120309
  Receipt Date: 20120302
  Transmission Date: 20120608
  Serious: Yes (Death, Hospitalization)
  Sender: FDA-Public Use
  Company Number: US-GENZYME-MOZO-1000655

PATIENT
  Age: 74 Year
  Sex: Female
  Weight: 67.6 kg

DRUGS (12)
  1. MIRALAX [Concomitant]
     Indication: PRODUCT USED FOR UNKNOWN INDICATION
     Dosage: 17 G, QD
     Route: 048
  2. STEROID THERAPY [Concomitant]
     Indication: CONTRAST MEDIA ALLERGY
  3. MOZOBIL [Suspect]
     Dosage: 22840 MCG, QD
     Route: 042
     Dates: start: 20120131, end: 20120201
  4. VITAMIN D [Concomitant]
     Indication: PRODUCT USED FOR UNKNOWN INDICATION
     Dosage: 2000 U, QD
     Route: 048
  5. OXYCODONE HCL [Concomitant]
     Indication: PRODUCT USED FOR UNKNOWN INDICATION
     Dosage: 5 MG, PRN
     Route: 048
  6. OXYCODONE HCL [Concomitant]
     Dosage: 10 MG, PRN
     Route: 048
  7. MOZOBIL [Suspect]
     Indication: DIFFUSE LARGE B-CELL LYMPHOMA
     Dosage: 22840 MCG, QD
     Route: 042
     Dates: start: 20120130, end: 20120130
  8. FLUORODEOXYGLUCOSE F 18 [Concomitant]
     Indication: POSITRON EMISSION TOMOGRAM
     Dosage: 13.2 MCI, UNK
     Route: 042
     Dates: start: 20120207, end: 20120207
  9. MOZOBIL [Suspect]
     Indication: HAEMATOPOIETIC STEM CELL MOBILISATION
     Dosage: 13704 MCG, ONCE
     Route: 058
     Dates: start: 20120125, end: 20120125
  10. CALCIUM [Concomitant]
     Indication: PRODUCT USED FOR UNKNOWN INDICATION
     Dosage: 500 MG, QD
     Route: 048
  11. FILGRASTIM [Suspect]
     Indication: HAEMATOPOIETIC STEM CELL MOBILISATION
     Dosage: 570 MCG, QD
     Route: 058
     Dates: start: 20120125, end: 20120201
  12. COLACE [Concomitant]
     Indication: PRODUCT USED FOR UNKNOWN INDICATION
     Dosage: 100 MG, PRN

REACTIONS (10)
  - SPLENOMEGALY [None]
  - SPLENIC RUPTURE [None]
  - GENERALISED OEDEMA [None]
  - HYPOTENSION [None]
  - DEHYDRATION [None]
  - VASCULAR PSEUDOANEURYSM [None]
  - SPLENIC INFARCTION [None]
  - DEATH [None]
  - ASCITES [None]
  - SPLENIC HAEMORRHAGE [None]
